FAERS Safety Report 5852944-1 (Version None)
Quarter: 2008Q3

REPORT INFORMATION
  Report Type: 
  Country: None (occurrence: None)
  Receive Date: 20080821
  Receipt Date: 20080819
  Transmission Date: 20090109
  Serious: Yes (Hospitalization)
  Sender: FDA-Public Use
  Company Number: US-BAYER-200813469NA

PATIENT
  Age: 58 Year
  Sex: Male

DRUGS (1)
  1. NEXAVAR [Suspect]
     Indication: RENAL CANCER
     Dosage: TOTAL DAILY DOSE: 800 MG  UNIT DOSE: 200 MG
     Route: 048
     Dates: start: 20060927, end: 20080128

REACTIONS (4)
  - FATIGUE [None]
  - GAIT DISTURBANCE [None]
  - HAEMOGLOBIN DECREASED [None]
  - RECTAL HAEMORRHAGE [None]
